FAERS Safety Report 7386600-8 (Version None)
Quarter: 2011Q1

REPORT INFORMATION
  Report Type: 
  Country: None (occurrence: None)
  Receive Date: 20110331
  Receipt Date: 20110322
  Transmission Date: 20110831
  Serious: No
  Sender: FDA-Public Use
  Company Number: US-ROCHE-767410

PATIENT
  Sex: Male

DRUGS (1)
  1. TAMIFLU [Suspect]
     Dosage: STRENGTH: 15 MG/ML
     Route: 048
     Dates: start: 20110319, end: 20110321

REACTIONS (2)
  - DRUG ADMINISTRATION ERROR [None]
  - NO ADVERSE EVENT [None]
